FAERS Safety Report 10038630 (Version 1)
Quarter: 2014Q1

REPORT INFORMATION
  Report Type: Spontaneous
  Country: US (occurrence: None)
  Receive Date: 20140306
  Receipt Date: 20140306
  Transmission Date: 20141002
  Serious: Yes (Other)
  Sender: FDA-Public Use
  Company Number: 163-21880-13070152

PATIENT
  Age: 79 Year
  Sex: Male
  Weight: 79.4 kg

DRUGS (9)
  1. REVLIMID (LENALIDOMIDE) (15 MILLIGRAM, CAPSULES) [Suspect]
     Indication: PLASMA CELL MYELOMA
     Dosage: 15MG, 1 IN 1D, PO
     Route: 048
     Dates: start: 201204
  2. CYMBALTA [Concomitant]
  3. GABAPENTIN (GABAPENTIN) (TABLETS) [Concomitant]
  4. LORAZEPAM (LORAZEPAM) (TABLETS) [Concomitant]
  5. ACYCLOVIR (ACICLOVIR) (TABLETS) [Concomitant]
  6. OXYCODONE HCL (OXYCODONE HYDROCHLORIDE) (TABLETS) [Concomitant]
  7. ACIPHEX (RABEPRAZOLE SODIUM) (TABLETS) [Concomitant]
  8. ANDRODERM (TESTOSTERONE) (POULTICE OR PATCH) [Concomitant]
  9. AZOR (AMLODIPINE W/OLMESARTAN) (TABLETS [Concomitant]

REACTIONS (1)
  - Syncope [None]
